FAERS Safety Report 23268209 (Version 1)
Quarter: 2023Q4

REPORT INFORMATION
  Report Type: Spontaneous
  Country: JP (occurrence: None)
  Receive Date: 20231206
  Receipt Date: 20231206
  Transmission Date: 20240109
  Serious: Yes (Hospitalization)
  Sender: FDA-Public Use
  Company Number: 2023A272523

PATIENT
  Age: 76 Year
  Sex: Male
  Weight: 50 kg

DRUGS (14)
  1. DAPAGLIFLOZIN [Suspect]
     Active Substance: DAPAGLIFLOZIN
     Indication: Type 2 diabetes mellitus
     Route: 048
     Dates: start: 20211102, end: 20230327
  2. LOKELMA [Suspect]
     Active Substance: SODIUM ZIRCONIUM CYCLOSILICATE
     Indication: Hyperkalaemia
     Route: 048
     Dates: start: 20230324
  3. LOSARTAN POTASSIUM [Concomitant]
     Active Substance: LOSARTAN POTASSIUM
     Dosage: DOSE UNKNOWN
     Route: 048
  4. TERBINAFINE [Concomitant]
     Active Substance: TERBINAFINE
     Dosage: DOSE UNKNOWN
     Route: 048
  5. AMLODIPINE [Concomitant]
     Active Substance: AMLODIPINE BESYLATE
     Dosage: DOSE UNKNOWN
     Route: 048
  6. LINAGLIPTIN [Concomitant]
     Active Substance: LINAGLIPTIN
     Dosage: DOSE UNKNOWN
     Route: 048
  7. KAYEXALATE [Concomitant]
     Active Substance: SODIUM POLYSTYRENE SULFONATE
     Dosage: DOSE UNKNOWN
     Route: 048
  8. INSULIN NOS [Concomitant]
     Active Substance: INSULIN NOS
     Dosage: DOSE UNKNOWN
     Route: 065
  9. HYALURONATE SODIUM [Concomitant]
     Active Substance: HYALURONATE SODIUM
     Dosage: DOSE UNKNOWN
     Route: 047
  10. TRAVOPROST [Concomitant]
     Active Substance: TRAVOPROST
     Dosage: DOSE UNKNOWN
     Route: 047
  11. OFLOXACIN [Concomitant]
     Active Substance: OFLOXACIN
     Dosage: DOSE UNKNOWN
     Route: 047
  12. INSULIN NOS [Concomitant]
     Active Substance: INSULIN NOS
     Indication: Type 2 diabetes mellitus
     Dosage: DOSE UNKNOWN UNKNOWN
     Route: 065
     Dates: end: 20230325
  13. HUMULIN R [Concomitant]
     Active Substance: INSULIN HUMAN
     Indication: Type 2 diabetes mellitus
     Dosage: 50.0IU UNKNOWN
     Route: 058
     Dates: start: 20230327, end: 20230329
  14. SODIUM CHLORIDE [Concomitant]
     Active Substance: SODIUM CHLORIDE
     Indication: Type 2 diabetes mellitus
     Dosage: 3 ML/HR50.0ML UNKNOWN
     Route: 058
     Dates: start: 20230327, end: 20230329

REACTIONS (6)
  - Penile necrosis [Recovering/Resolving]
  - Urinary tract infection [Unknown]
  - Diabetic ketoacidosis [Unknown]
  - Blood potassium increased [Unknown]
  - Balanoposthitis [Unknown]
  - Decreased appetite [Unknown]

NARRATIVE: CASE EVENT DATE: 20230324
